FAERS Safety Report 25217097 (Version 1)
Quarter: 2025Q2

REPORT INFORMATION
  Report Type: Spontaneous
  Country: US (occurrence: US)
  Receive Date: 20250419
  Receipt Date: 20250419
  Transmission Date: 20250716
  Serious: Yes (Hospitalization, Other)
  Sender: SANOFI AVENTIS
  Company Number: US-DialogSolutions-SAAVPROD-PI759162-C1

PATIENT
  Age: 68 Year
  Sex: Male

DRUGS (2)
  1. LEFLUNOMIDE [Suspect]
     Active Substance: LEFLUNOMIDE
     Indication: Psoriatic arthropathy
     Dates: start: 202407
  2. APIXABAN [Concomitant]
     Active Substance: APIXABAN

REACTIONS (6)
  - Drug-induced liver injury [Recovering/Resolving]
  - Abdominal pain [Recovering/Resolving]
  - Ocular icterus [Recovering/Resolving]
  - Jaundice [Recovering/Resolving]
  - Portal tract inflammation [Recovering/Resolving]
  - Hepatitis cholestatic [Recovering/Resolving]
